FAERS Safety Report 24411880 (Version 1)
Quarter: 2024Q4

REPORT INFORMATION
  Report Type: Other
  Country: US (occurrence: US)
  Receive Date: 20241008
  Receipt Date: 20241008
  Transmission Date: 20250114
  Serious: Yes (Death)
  Sender: COREPHARMA
  Company Number: US-CorePharma LLC-2162647

PATIENT
  Age: 82 Year

DRUGS (8)
  1. LISINOPRIL [Suspect]
     Active Substance: LISINOPRIL
     Indication: Product used for unknown indication
  2. DONEPEZIL [Suspect]
     Active Substance: DONEPEZIL
  3. TAMSULOSIN HYDROCHLORIDE [Suspect]
     Active Substance: TAMSULOSIN HYDROCHLORIDE
  4. KETOROLAC [Suspect]
     Active Substance: KETOROLAC TROMETHAMINE
  5. APIXABAN [Suspect]
     Active Substance: APIXABAN
  6. SOTALOL [Suspect]
     Active Substance: SOTALOL\SOTALOL HYDROCHLORIDE
  7. FINASTERIDE [Suspect]
     Active Substance: FINASTERIDE
  8. BACLOFEN [Suspect]
     Active Substance: BACLOFEN

REACTIONS (1)
  - Intentional overdose [Fatal]
